FAERS Safety Report 5763997-3 (Version None)
Quarter: 2008Q2

REPORT INFORMATION
  Report Type: 
  Country: None (occurrence: None)
  Receive Date: 20080609
  Receipt Date: 20080304
  Transmission Date: 20081010
  Serious: No
  Sender: FDA-Public Use
  Company Number: 002#2#2008-00097

PATIENT
  Age: 72 Year
  Sex: Male
  Weight: 77.1115 kg

DRUGS (3)
  1. NEUPRO [Suspect]
     Indication: PARKINSON'S DISEASE
     Dosage: 4MG/24H,1 IN 1 D,TRANSDERMAL ; 2MG/24H,1 IN 1 D,TRANSDERMAL
     Route: 062
     Dates: start: 20080216, end: 20080220
  2. NEUPRO [Suspect]
     Indication: PARKINSON'S DISEASE
     Dosage: 4MG/24H,1 IN 1 D,TRANSDERMAL ; 2MG/24H,1 IN 1 D,TRANSDERMAL
     Route: 062
     Dates: start: 20060221
  3. CARBIDOPA AND LEVODOPA [Concomitant]

REACTIONS (2)
  - PHARMACEUTICAL PRODUCT COMPLAINT [None]
  - SOMNOLENCE [None]
